FAERS Safety Report 5173137-X (Version None)
Quarter: 2006Q4

REPORT INFORMATION
  Report Type: 
  Country: None (occurrence: None)
  Receive Date: 20061207
  Receipt Date: 20061207
  Transmission Date: 20070319
  Serious: Yes (Hospitalization)
  Sender: FDA-Public Use
  Company Number: None

PATIENT
  Age: 41 Year
  Sex: Male
  Weight: 123.4 kg

DRUGS (1)
  1. PHENDIMETRAZINE   105 MG      VALEANT PHARMACEUTICALS [Suspect]
     Indication: WEIGHT DECREASED
     Dosage: 105 MG   DAILY   PO
     Route: 048

REACTIONS (6)
  - BRADYCARDIA [None]
  - CONVULSION [None]
  - DIZZINESS [None]
  - FALL [None]
  - SINUS BRADYCARDIA [None]
  - TACHYCARDIA [None]
